FAERS Safety Report 4710420-3 (Version None)
Quarter: 2005Q3

REPORT INFORMATION
  Report Type: 
  Country: None (occurrence: None)
  Receive Date: 20050707
  Receipt Date: 20050622
  Transmission Date: 20060218
  Serious: Yes (Disabling)
  Sender: FDA-Public Use
  Company Number: SGB1-2005-00276

PATIENT
  Age: 70 Year
  Sex: Male

DRUGS (4)
  1. ANAGRELIDE HCL [Suspect]
     Indication: ESSENTIAL THROMBOCYTHAEMIA
     Dates: start: 20050407, end: 20050412
  2. ALNA (TAMSULOSIN HYDROCHLORIDE) [Concomitant]
  3. APSOMOL (SALBUTAMOL) [Concomitant]
  4. PREDNISOLONE [Concomitant]

REACTIONS (1)
  - RETINAL DETACHMENT [None]
